FAERS Safety Report 8864055 (Version 1)
Quarter: 2012Q4

REPORT INFORMATION
  Report Type: 
  Country: US (occurrence: US)
  Receive Date: 20121024
  Receipt Date: 20121024
  Transmission Date: 20130627
  Serious: No
  Sender: FDA-Public Use
  Company Number: US-AMGEN-USASP2011065713

PATIENT
  Sex: Female
  Weight: 90.7 kg

DRUGS (14)
  1. ENBREL [Suspect]
     Indication: PRODUCT USED FOR UNKNOWN INDICATION
     Dosage: 25 mg, 2 times/wk
  2. METHOTREXATE [Concomitant]
     Dosage: 2.5 mg, UNK
     Route: 048
  3. SALSALATE [Concomitant]
     Dosage: 500 mg, UNK
     Route: 048
  4. LEUCOVORIN CA [Concomitant]
     Dosage: 5 mg, UNK
     Route: 048
  5. FOLIC ACID [Concomitant]
     Dosage: 5 mg, UNK
     Route: 048
  6. HYDROCHLOROTHIAZIDE W/TRIAMTERENE [Concomitant]
     Dosage: 25 UNK, UNK
     Route: 048
  7. HYDROCHLOROTHIAZIDE W/TRIAMTERENE [Concomitant]
     Dosage: 37.5 UNK, UNK
     Route: 048
  8. PROMETRIUM                         /00110701/ [Concomitant]
     Dosage: 100 mg, UNK
     Route: 048
  9. VIVELLE-DOT [Concomitant]
     Dosage: 0.025 mg, UNK
  10. VITAMIN D /00107901/ [Concomitant]
     Dosage: 400 UNK, UNK
     Route: 048
  11. VITAMIN B [Concomitant]
     Route: 048
  12. LYSINE [Concomitant]
     Dosage: 500 mg, UNK
     Route: 048
  13. VITAMIN C                          /00008001/ [Concomitant]
     Dosage: 500 mg, UNK
     Route: 048
  14. VITAMIN E                          /00110501/ [Concomitant]
     Dosage: 1000 unit, UNK
     Route: 048

REACTIONS (2)
  - Inflammation [Unknown]
  - Pain [Unknown]
